FAERS Safety Report 10903136 (Version 1)
Quarter: 2015Q1

REPORT INFORMATION
  Report Type: Spontaneous
  Country: CA (occurrence: CA)
  Receive Date: 20150311
  Receipt Date: 20150311
  Transmission Date: 20150721
  Serious: Yes (Death, Other)
  Sender: FDA-Public Use
  Company Number: CA-AMGEN-CANSP2015021898

PATIENT

DRUGS (33)
  1. RITUXIMAB [Suspect]
     Active Substance: RITUXIMAB
     Indication: B-CELL LYMPHOMA REFRACTORY
     Dosage: 2 SETS OF 4 WEEKLY RITUXIMAB AT 2 AND 6 MONTHS POST ASCT RESPICTIVELY (375 MG/M2, 4 IN 1 WK)
     Route: 042
  2. INTERFERON ALFA-2A [Suspect]
     Active Substance: INTERFERON ALFA-2A
     Indication: B-CELL LYMPHOMA
     Dosage: 3 MU/M2 FOR 2 YEARS POST ASCT (3 IN 1 WK)
     Route: 058
  3. PREDNISONE. [Suspect]
     Active Substance: PREDNISONE
     Indication: B-CELL LYMPHOMA
  4. FLUDARABINE [Suspect]
     Active Substance: FLUDARABINE PHOSPHATE
     Indication: B-CELL LYMPHOMA REFRACTORY
     Dosage: UNK
     Route: 065
  5. RITUXIMAB [Suspect]
     Active Substance: RITUXIMAB
     Dosage: 375 MG/M2, 1 IN 1 WK, FOR 6 WEEKS
     Route: 042
  6. DEXAMETHASONE. [Suspect]
     Active Substance: DEXAMETHASONE
     Indication: B-CELL LYMPHOMA
  7. VP-16 [Suspect]
     Active Substance: ETOPOSIDE
     Indication: B-CELL LYMPHOMA
  8. BICNU [Suspect]
     Active Substance: CARMUSTINE
     Indication: B-CELL LYMPHOMA REFRACTORY
     Dosage: 0.45 G/M2, OVER 4 H DAY-2, UNK
     Route: 065
  9. CISPLATIN. [Suspect]
     Active Substance: CISPLATIN
     Indication: B-CELL LYMPHOMA
     Dosage: BY 24-H INFUSION FOR 4 DAYS (25 MG/M2), UNK
     Route: 042
  10. ETOPOSIDE. [Suspect]
     Active Substance: ETOPOSIDE
     Indication: B-CELL LYMPHOMA
  11. FILGRASTIM [Suspect]
     Active Substance: FILGRASTIM
     Indication: B-CELL LYMPHOMA
     Dosage: 7-10 DAYS (10 MUG/KG), UNK
     Route: 065
  12. FILGRASTIM [Suspect]
     Active Substance: FILGRASTIM
     Indication: B-CELL LYMPHOMA REFRACTORY
  13. CYCLOPHOSPHAMIDE. [Suspect]
     Active Substance: CYCLOPHOSPHAMIDE
     Indication: B-CELL LYMPHOMA
     Dosage: 1.8 G/M2, OVER 2 H DAYS 6,5,4, AND 3UNK
     Route: 065
  14. VINCRISTINE [Suspect]
     Active Substance: VINCRISTINE
     Indication: B-CELL LYMPHOMA REFRACTORY
     Dosage: DAY 1 (1.4 MG/M2), UNK
     Route: 042
  15. DOXORUBICINE                       /00330901/ [Suspect]
     Active Substance: DOXORUBICIN
     Indication: B-CELL LYMPHOMA
  16. CISPLATIN. [Suspect]
     Active Substance: CISPLATIN
     Indication: B-CELL LYMPHOMA REFRACTORY
     Dosage: DAY 1 AND 2 (100 MG/M2), UNK
     Route: 042
  17. INTERFERON ALFA-2A [Suspect]
     Active Substance: INTERFERON ALFA-2A
     Indication: B-CELL LYMPHOMA REFRACTORY
  18. CYCLOPHOSPHAMIDE. [Suspect]
     Active Substance: CYCLOPHOSPHAMIDE
     Indication: B-CELL LYMPHOMA REFRACTORY
     Dosage: DAY 1 (750 MG/M2), UNK
     Route: 042
  19. DOXORUBICINE                       /00330901/ [Suspect]
     Active Substance: DOXORUBICIN
     Indication: B-CELL LYMPHOMA REFRACTORY
     Dosage: DAY 1 (50 MG/M2), UNK
     Route: 042
  20. CYTARABINE. [Suspect]
     Active Substance: CYTARABINE
     Indication: B-CELL LYMPHOMA REFRACTORY
     Dosage: 2 ON DAY 2 (2000 MG/M2), UNK
     Route: 042
  21. CYTARABINE. [Suspect]
     Active Substance: CYTARABINE
     Indication: B-CELL LYMPHOMA
  22. DEXAMETHASONE. [Suspect]
     Active Substance: DEXAMETHASONE
     Indication: B-CELL LYMPHOMA REFRACTORY
     Dosage: 40 MG/M2, UNK
     Route: 048
  23. VP-16 [Suspect]
     Active Substance: ETOPOSIDE
     Indication: B-CELL LYMPHOMA REFRACTORY
     Dosage: FOR 4 DAYS (40 MG/M2, PER DAY)
     Route: 065
  24. METHYLPREDNISOLONE. [Suspect]
     Active Substance: METHYLPREDNISOLONE
     Indication: B-CELL LYMPHOMA REFRACTORY
     Dosage: FOR 5 DAYS (500 MG, DAILY)
     Route: 042
  25. ARA-C [Suspect]
     Active Substance: CYTARABINE
     Indication: B-CELL LYMPHOMA REFRACTORY
     Dosage: 2 G/M2 OVER 2 TO 3 H ON DAY 5, UNK
     Route: 042
  26. METHYLPREDNISOLONE. [Suspect]
     Active Substance: METHYLPREDNISOLONE
     Indication: B-CELL LYMPHOMA
  27. RITUXIMAB [Suspect]
     Active Substance: RITUXIMAB
     Indication: B-CELL LYMPHOMA
     Dosage: IN VIVO PURGING 3-5 DAYS PRE-STEM CELL COLLECTION. SINGLE OR 3 INFUSION (375 MG/M2), UNK
     Route: 042
  28. VINCRISTINE [Suspect]
     Active Substance: VINCRISTINE
     Indication: B-CELL LYMPHOMA
  29. PREDNISONE. [Suspect]
     Active Substance: PREDNISONE
     Indication: B-CELL LYMPHOMA REFRACTORY
     Dosage: DAY 1-5 (100 MG), UNK
     Route: 048
  30. FLUDARABINE [Suspect]
     Active Substance: FLUDARABINE PHOSPHATE
     Indication: B-CELL LYMPHOMA
  31. ARA-C [Suspect]
     Active Substance: CYTARABINE
     Indication: B-CELL LYMPHOMA
  32. BICNU [Suspect]
     Active Substance: CARMUSTINE
     Indication: B-CELL LYMPHOMA
  33. ETOPOSIDE. [Suspect]
     Active Substance: ETOPOSIDE
     Indication: B-CELL LYMPHOMA REFRACTORY
     Dosage: 2.4 G/M2, OVER 24 H DAYS-7 AND 6, UNK
     Route: 065

REACTIONS (24)
  - Diffuse large B-cell lymphoma [Fatal]
  - Acute lymphocytic leukaemia [Fatal]
  - Herpes zoster [Unknown]
  - Haemolytic uraemic syndrome [Unknown]
  - Interstitial lung disease [Unknown]
  - Basal cell carcinoma [Unknown]
  - Non-small cell lung cancer [Fatal]
  - Depression [Unknown]
  - Thrombocytopenic purpura [Unknown]
  - Bronchitis [Unknown]
  - Fatigue [Unknown]
  - Infection [Fatal]
  - Myelodysplastic syndrome [Fatal]
  - Acute myeloid leukaemia [Fatal]
  - Squamous cell carcinoma [Unknown]
  - Respiratory tract infection [Unknown]
  - Cytopenia [Unknown]
  - Fungal infection [Unknown]
  - Atrial fibrillation [Unknown]
  - Pulmonary fibrosis [Unknown]
  - Thyroid cancer [Unknown]
  - Colorectal adenocarcinoma [Unknown]
  - Hypogammaglobulinaemia [Unknown]
  - Respiratory disorder [Unknown]
